FAERS Safety Report 5673448-5 (Version None)
Quarter: 2008Q2

REPORT INFORMATION
  Report Type: 
  Country: None (occurrence: None)
  Receive Date: 20080219
  Receipt Date: 20071029
  Transmission Date: 20081010
  Serious: No
  Sender: FDA-Public Use
  Company Number: TPA2007A02169

PATIENT
  Age: 75 Year
  Sex: Female
  Weight: 83.0083 kg

DRUGS (8)
  1. ROZEREM [Suspect]
     Indication: INITIAL INSOMNIA
     Dosage: 8 MG, QHS, PER ORAL
     Route: 048
     Dates: start: 20071014, end: 20071015
  2. PERCOCET [Concomitant]
  3. COUMADIN [Concomitant]
  4. TOPROL-XL [Concomitant]
  5. CALCIUM (CALCIUM) [Concomitant]
  6. FISH OIL (FISH OIL) [Concomitant]
  7. ONE A DAY (VITAMINS NOS) [Concomitant]
  8. FOLIC ACID [Concomitant]

REACTIONS (2)
  - DRUG INEFFECTIVE [None]
  - INITIAL INSOMNIA [None]
